FAERS Safety Report 7245003-7 (Version None)
Quarter: 2011Q1

REPORT INFORMATION
  Report Type: 
  Country: None (occurrence: None)
  Receive Date: 20110126
  Receipt Date: 20110121
  Transmission Date: 20110831
  Serious: Yes (Death, Hospitalization)
  Sender: FDA-Public Use
  Company Number: US-ASTELLAS-2011US000151

PATIENT

DRUGS (1)
  1. LEXISCAN [Suspect]
     Indication: SCAN MYOCARDIAL PERFUSION
     Dosage: 5 ML, TOTAL DOSE
     Route: 042
     Dates: start: 20100625, end: 20100625

REACTIONS (3)
  - HEPATIC FAILURE [None]
  - ALCOHOLIC LIVER DISEASE [None]
  - DEATH [None]
